FAERS Safety Report 7643705-1 (Version None)
Quarter: 2011Q3

REPORT INFORMATION
  Report Type: 
  Country: None (occurrence: None)
  Receive Date: 20110729
  Receipt Date: 20110317
  Transmission Date: 20111222
  Serious: No
  Sender: FDA-Public Use
  Company Number: DE-UCBSA-029014

PATIENT
  Sex: Female
  Weight: 69 kg

DRUGS (3)
  1. CIMZIA [Suspect]
     Indication: RHEUMATOID ARTHRITIS
     Dosage: DOSE: 400 UNITS UNSPECIFIED
     Route: 058
     Dates: start: 20110113, end: 20110129
  2. LEFLUNOMIDE [Concomitant]
     Indication: RHEUMATOID ARTHRITIS
     Dosage: DOSE: 10 UNITS UNSPECIFIED
     Route: 048
     Dates: start: 20060301
  3. PREDNISOLONE [Concomitant]
     Indication: RHEUMATOID ARTHRITIS
     Dosage: DOSE :  5 UNITS UNSPECIFIED
     Route: 048
     Dates: start: 19670101

REACTIONS (1)
  - INJECTION SITE REACTION [None]
